FAERS Safety Report 8470417-7 (Version None)
Quarter: 2012Q2

REPORT INFORMATION
  Report Type: 
  Country: None (occurrence: None)
  Receive Date: 20120620
  Receipt Date: 20120605
  Transmission Date: 20120825
  Serious: Yes (Other)
  Sender: FDA-Public Use
  Company Number: 2012MA006961

PATIENT
  Age: 55 Year
  Sex: Female

DRUGS (1)
  1. KADIAN [Suspect]

REACTIONS (2)
  - DRUG HYPERSENSITIVITY [None]
  - PANIC ATTACK [None]
